FAERS Safety Report 15440158 (Version 1)
Quarter: 2018Q3

REPORT INFORMATION
  Report Type: Spontaneous
  Country: US (occurrence: US)
  Receive Date: 20180925
  Receipt Date: 20180925
  Transmission Date: 20181010
  Serious: No
  Sender: FDA-Public Use
  Company Number: None

PATIENT
  Age: 45 Year
  Sex: Female
  Weight: 72 kg

DRUGS (2)
  1. LEVOTHYROXIN 75MCG [Suspect]
     Active Substance: LEVOTHYROXINE
     Indication: THYROID DISORDER
     Dosage: ?          QUANTITY:1 DF DOSAGE FORM;?
     Route: 048
     Dates: start: 20140921, end: 20180817
  2. LEVITHYROXIN 50MCG [Suspect]
     Active Substance: LEVOTHYROXINE
     Indication: THYROID DISORDER
     Dosage: ?          QUANTITY:1 DF DOSAGE FORM;?
     Route: 048

REACTIONS (9)
  - Irritability [None]
  - Therapy cessation [None]
  - Dizziness [None]
  - Mood swings [None]
  - Fatigue [None]
  - Menstruation irregular [None]
  - Metrorrhagia [None]
  - Product use issue [None]
  - Anxiety [None]

NARRATIVE: CASE EVENT DATE: 20180821
